FAERS Safety Report 14753401 (Version 1)
Quarter: 2018Q2

REPORT INFORMATION
  Report Type: Other
  Country: None (occurrence: US)
  Receive Date: 20180412
  Receipt Date: 20180412
  Transmission Date: 20180711
  Serious: Yes (Other)
  Sender: FDA-Public Use
  Company Number: US-GUTHY-RENKER, LLC-2045686

PATIENT
  Age: 51 Year
  Sex: Female

DRUGS (2)
  1. ATENOLOL 25 MG [Concomitant]
     Active Substance: ATENOLOL
  2. MEANINGFUL BEAUTY CINDY CRAWFORD ANTIOXIDANT SPF 20 UVA/UVB [Suspect]
     Active Substance: AVOBENZONE\OCTINOXATE\OCTISALATE\OXYBENZONE
     Indication: PROPHYLAXIS AGAINST SOLAR RADIATION
     Route: 061
     Dates: start: 20180204, end: 20180402

REACTIONS (3)
  - Hypersensitivity [None]
  - Dyspnoea [Recovering/Resolving]
  - Throat tightness [None]

NARRATIVE: CASE EVENT DATE: 20180214
